FAERS Safety Report 6299997-7 (Version None)
Quarter: 2009Q3

REPORT INFORMATION
  Report Type: 
  Country: None (occurrence: None)
  Receive Date: 20090806
  Receipt Date: 20090727
  Transmission Date: 20100115
  Serious: Yes (Hospitalization, Other)
  Sender: FDA-Public Use
  Company Number: US-ELI_LILLY_AND_COMPANY-US200907006190

PATIENT
  Age: 86 Year
  Sex: Female

DRUGS (6)
  1. FORTEO [Suspect]
     Dates: start: 20081120, end: 20090702
  2. FORTEO [Suspect]
     Dates: start: 20081120, end: 20090702
  3. FORTEO [Suspect]
     Dates: start: 20081120, end: 20090702
  4. FORTEO [Suspect]
     Dates: start: 20081120, end: 20090702
  5. FORTEO [Suspect]
     Dates: start: 20081120, end: 20090702
  6. SIMVASTATIN [Concomitant]
     Indication: BLOOD CHOLESTEROL
     Dosage: 20 MG, UNK

REACTIONS (17)
  - ASTHENIA [None]
  - COGNITIVE DISORDER [None]
  - CONSTIPATION [None]
  - CONTUSION [None]
  - DIZZINESS [None]
  - FACIAL BONES FRACTURE [None]
  - FALL [None]
  - FEELING ABNORMAL [None]
  - LOSS OF CONSCIOUSNESS [None]
  - MEMORY IMPAIRMENT [None]
  - MENTAL IMPAIRMENT [None]
  - NAUSEA [None]
  - NERVOUS SYSTEM DISORDER [None]
  - TOOTH FRACTURE [None]
  - VERTIGO [None]
  - VISUAL IMPAIRMENT [None]
  - WRIST FRACTURE [None]
